FAERS Safety Report 10038142 (Version 1)
Quarter: 2014Q1

REPORT INFORMATION
  Report Type: Spontaneous
  Country: US (occurrence: None)
  Receive Date: 20140306
  Receipt Date: 20140306
  Transmission Date: 20141002
  Serious: Yes (Other)
  Sender: FDA-Public Use
  Company Number: 163-21880-13105077

PATIENT
  Age: 54 Year
  Sex: Female

DRUGS (13)
  1. REVLIMID [Suspect]
     Indication: PLASMA CELL MYELOMA
     Dosage: 1 IN 1 D, PO
     Route: 048
     Dates: start: 20061001
  2. ACYCLOVIR (ACICLOVIR) (UNKNOWN) [Concomitant]
  3. CALCIUM + VITAMIN D (LEKOVIT CA) (UNKNOWN) [Concomitant]
  4. CLARITIN (LORATADINE) (UNKNOWN) [Concomitant]
  5. FISH OIL (FISH OIL) [Concomitant]
  6. FLAX SEED (LINUM USITATISSIMUM SEED OIL) (UNKNOWN)? [Concomitant]
  7. LEVOTHYROXIN (LEVOTHYROIXINE SODIUM) (UNKNOWN) [Concomitant]
  8. MTV (MTV) (UNKNOWN) [Concomitant]
  9. PREVACID (LANSOPRZOLE) (UNKNOWN) [Concomitant]
  10. SELENIUM (SELENIUM) (UNKNOWN) [Concomitant]
  11. TRIAMCINOLONE (TRIAMCINOLONE) (UNKNOWN) [Concomitant]
  12. VITAMIN C (ASCORBIC ACID) (UNKNOWN) [Concomitant]
  13. VITAMIN E (TOCOPHEROL) (UNKNOWN) [Concomitant]

REACTIONS (1)
  - Dermatitis allergic [None]
